FAERS Safety Report 15847193 (Version 1)
Quarter: 2019Q1

REPORT INFORMATION
  Report Type: Spontaneous
  Country: US (occurrence: US)
  Receive Date: 20190121
  Receipt Date: 20190121
  Transmission Date: 20190417
  Serious: No
  Sender: FDA-Public Use
  Company Number: US-JNJFOC-20190102332

PATIENT
  Age: 79 Year
  Sex: Female
  Weight: 66.23 kg

DRUGS (1)
  1. TYLENOL EXTRA STRENGTH [Suspect]
     Active Substance: ACETAMINOPHEN
     Indication: HERPES ZOSTER
     Dosage: ONE TIME
     Route: 048
     Dates: start: 20190101

REACTIONS (2)
  - Product use in unapproved indication [Unknown]
  - Pain [Not Recovered/Not Resolved]

NARRATIVE: CASE EVENT DATE: 20190101
